FAERS Safety Report 4711139-5 (Version None)
Quarter: 2005Q3

REPORT INFORMATION
  Report Type: 
  Country: None (occurrence: None)
  Receive Date: 20050708
  Receipt Date: 20050706
  Transmission Date: 20060218
  Serious: Yes (Other)
  Sender: FDA-Public Use
  Company Number: THQ2005A00539

PATIENT
  Age: 36 Year
  Sex: Female

DRUGS (1)
  1. LEUPROLIDE ACETATE [Suspect]
     Indication: ENDOMETRIOSIS
     Dosage: ( 1 IN 1 M)
     Route: 030
     Dates: start: 20040901, end: 20050201

REACTIONS (6)
  - ASTHENIA [None]
  - FATIGUE [None]
  - JOINT CREPITATION [None]
  - LIVER FUNCTION TEST ABNORMAL [None]
  - METABOLIC DISORDER [None]
  - WEIGHT INCREASED [None]
